FAERS Safety Report 7584514-1 (Version None)
Quarter: 2011Q2

REPORT INFORMATION
  Report Type: 
  Country: None (occurrence: None)
  Receive Date: 20110630
  Receipt Date: 20110407
  Transmission Date: 20111010
  Serious: Yes (Hospitalization)
  Sender: FDA-Public Use
  Company Number: US-ABBOTT-11P-163-0717598-00

PATIENT
  Age: 49 Year
  Sex: Male
  Weight: 78.542 kg

DRUGS (3)
  1. HUMIRA [Suspect]
     Indication: PSORIASIS
  2. DILAUDID [Suspect]
     Indication: ARTHRALGIA
     Dates: start: 20110301, end: 20110301
  3. HUMIRA [Suspect]
     Indication: PSORIATIC ARTHROPATHY
     Route: 058
     Dates: start: 20100901, end: 20101101

REACTIONS (2)
  - ARTHRALGIA [None]
  - NAUSEA [None]
